FAERS Safety Report 9305814 (Version 2)
Quarter: 2013Q2

REPORT INFORMATION
  Report Type: Spontaneous
  Country: US (occurrence: US)
  Receive Date: 20130523
  Receipt Date: 20130617
  Transmission Date: 20140414
  Serious: No
  Sender: FDA-Public Use
  Company Number: US-PFIZER INC-2013154457

PATIENT
  Age: 42 Year
  Sex: Female
  Weight: 86.17 kg

DRUGS (2)
  1. REVATIO [Suspect]
     Indication: RAYNAUD^S PHENOMENON
     Dosage: THREE TABLETS OF 20 MG DAILY AT NIGHT
     Route: 048
     Dates: start: 201303
  2. SOMA [Concomitant]
     Indication: SPINAL FUSION SURGERY
     Dosage: TWO TABLETS DAILY AT NIGHT
     Route: 048

REACTIONS (2)
  - Off label use [Unknown]
  - Therapeutic response unexpected [Unknown]
